FAERS Safety Report 17859512 (Version 1)
Quarter: 2020Q2

REPORT INFORMATION
  Report Type: Spontaneous
  Country: US (occurrence: US)
  Receive Date: 20200604
  Receipt Date: 20200604
  Transmission Date: 20200714
  Serious: No
  Sender: FDA-Public Use
  Company Number: US-TEVA-2020-US-1243411

PATIENT
  Age: 58 Year
  Sex: Female

DRUGS (1)
  1. LISINOPRIL AND HYDROCHLOROTHIAZIDE [Suspect]
     Active Substance: HYDROCHLOROTHIAZIDE\LISINOPRIL
     Route: 065
     Dates: start: 20200417, end: 20200525

REACTIONS (8)
  - Decreased appetite [Not Recovered/Not Resolved]
  - Hair disorder [Unknown]
  - Dizziness [Not Recovered/Not Resolved]
  - Dehydration [Not Recovered/Not Resolved]
  - Drug hypersensitivity [Unknown]
  - Feeding disorder [Not Recovered/Not Resolved]
  - Rash [Unknown]
  - Pallor [Unknown]

NARRATIVE: CASE EVENT DATE: 202004
